FAERS Safety Report 8585199-8 (Version None)
Quarter: 2012Q2

REPORT INFORMATION
  Report Type: 
  Country: None (occurrence: None)
  Receive Date: 20120423
  Receipt Date: 20120109
  Transmission Date: 20120825
  Serious: Yes (Other)
  Sender: FDA-Public Use
  Company Number: FK201200067

PATIENT
  Sex: Female
  Weight: 87 kg

DRUGS (2)
  1. HEPARIN SODIUM [Suspect]
     Indication: PROPHYLAXIS
     Dosage: 5000 IU, AT 09:15, INTRA-ARTERIAL
     Route: 013
  2. HEPARIN SODIUM [Suspect]
     Dosage: SEE IMAGE
     Route: 040

REACTIONS (1)
  - DRUG INEFFECTIVE [None]
